FAERS Safety Report 19596177 (Version 2)
Quarter: 2021Q3

REPORT INFORMATION
  Report Type: Spontaneous
  Country: JP (occurrence: JP)
  Receive Date: 20210723
  Receipt Date: 20210805
  Transmission Date: 20211014
  Serious: Yes (Hospitalization)
  Sender: FDA-Public Use
  Company Number: JP-TEVA-2021-JP-1935774

PATIENT
  Age: 57 Year
  Sex: Male

DRUGS (5)
  1. FLUOROURACIL. [Suspect]
     Active Substance: FLUOROURACIL
     Indication: OESOPHAGEAL CARCINOMA
     Dosage: TWO COURSES
     Route: 065
  2. HEPARIN [Suspect]
     Active Substance: HEPARIN SODIUM
     Indication: ANTICOAGULANT THERAPY
     Dosage: DRIP INFUSION
     Route: 050
  3. CISPLATIN. [Suspect]
     Active Substance: CISPLATIN
     Indication: OESOPHAGEAL CARCINOMA
     Dosage: TWO COURSES
     Route: 065
  4. WARFARIN [Suspect]
     Active Substance: WARFARIN
     Indication: ANTICOAGULANT THERAPY
     Route: 048
  5. AMOXICILLIN/SULBACTAM [Concomitant]
     Indication: ANTIBIOTIC THERAPY
     Route: 065

REACTIONS (3)
  - Aortic thrombosis [Recovered/Resolved]
  - Renal infarct [Recovered/Resolved]
  - Drug ineffective [Unknown]
